FAERS Safety Report 4975257-9 (Version None)
Quarter: 2006Q2

REPORT INFORMATION
  Report Type: 
  Country: None (occurrence: None)
  Receive Date: 20060418
  Receipt Date: 20060406
  Transmission Date: 20061013
  Serious: Yes (Hospitalization)
  Sender: FDA-Public Use
  Company Number: US-MERCK-0604USA01516

PATIENT
  Age: 35 Year
  Sex: Female
  Weight: 100 kg

DRUGS (2)
  1. VIOXX [Suspect]
     Indication: FIBROMYALGIA
     Route: 048
     Dates: start: 20000101, end: 20010220
  2. CELEBREX [Concomitant]
     Route: 065
     Dates: start: 20000101

REACTIONS (22)
  - ACROCHORDON [None]
  - ANXIETY [None]
  - ARTHRALGIA [None]
  - CARDIAC DISORDER [None]
  - CHRONIC FATIGUE SYNDROME [None]
  - CONDITION AGGRAVATED [None]
  - CONGESTIVE CARDIOMYOPATHY [None]
  - COUGH [None]
  - DEPRESSION [None]
  - DIARRHOEA [None]
  - FIBROMYALGIA [None]
  - GASTRIC HAEMORRHAGE [None]
  - GASTROOESOPHAGEAL REFLUX DISEASE [None]
  - HYPERLIPIDAEMIA [None]
  - HYPERTENSION [None]
  - MULTIPLE ALLERGIES [None]
  - MYOCARDIAL INFARCTION [None]
  - NAUSEA [None]
  - NON-CARDIAC CHEST PAIN [None]
  - POLYMYOSITIS [None]
  - SHOULDER PAIN [None]
  - SINUSITIS [None]
